FAERS Safety Report 13913583 (Version 2)
Quarter: 2022Q1

REPORT INFORMATION
  Report Type: Report from Study
  Country: CN (occurrence: None)
  Receive Date: 20170829
  Receipt Date: 20220322
  Transmission Date: 20220423
  Serious: Yes (Hospitalization)
  Sender: FDA-Public Use
  Company Number: CN-ROCHE-1819980

PATIENT
  Age: 51 Year
  Sex: Female
  Weight: 58 kg

DRUGS (31)
  1. PERTUZUMAB [Suspect]
     Active Substance: PERTUZUMAB
     Indication: HER2 positive breast cancer
     Dosage: LOADING DOSE
     Route: 042
     Dates: start: 20160713
  2. PERTUZUMAB [Suspect]
     Active Substance: PERTUZUMAB
     Dosage: MAINTENENCE DOSE?MOST RECENT DOSE PRIOR TO AE (ADVERSE EVENT) WAS ADMINISTERED ON 03/AUG/2016
     Route: 042
  3. TRASTUZUMAB [Suspect]
     Active Substance: TRASTUZUMAB
     Indication: HER2 positive breast cancer
     Dosage: LOADING DOSE
     Route: 042
     Dates: start: 20160713
  4. TRASTUZUMAB [Suspect]
     Active Substance: TRASTUZUMAB
     Dosage: MAINTENENCE DOSE?MOST RECENT DOSE PRIOR TO AE (ADVERSE EVENT) WAS ADMINISTERED ON 03/AUG/2016 (360 M
     Route: 042
  5. DOCETAXEL [Suspect]
     Active Substance: DOCETAXEL
     Indication: HER2 positive breast cancer
     Dosage: MOST RECENT DOSE PRIOR TO AE (ADVERSE EVENT) WAS ADMINISTERED ON 03/AUG/2016
     Route: 042
     Dates: start: 20160713
  6. MONTMORILLONITE [Concomitant]
     Active Substance: MONTMORILLONITE
     Indication: Diarrhoea
     Dates: start: 20160727, end: 20160803
  7. DEXAMETHASONE ACETATE [Concomitant]
     Active Substance: DEXAMETHASONE ACETATE
     Dates: start: 20160713, end: 20160713
  8. DEXAMETHASONE ACETATE [Concomitant]
     Active Substance: DEXAMETHASONE ACETATE
     Dates: start: 20160803, end: 20160803
  9. CIMETIDINE [Concomitant]
     Active Substance: CIMETIDINE
     Dates: start: 20160713, end: 20160713
  10. CIMETIDINE [Concomitant]
     Active Substance: CIMETIDINE
     Dates: start: 20160803, end: 20160803
  11. DIPHENHYDRAMINE HYDROCHLORIDE [Concomitant]
     Active Substance: DIPHENHYDRAMINE HYDROCHLORIDE
     Dates: start: 20160713, end: 20160713
  12. DIPHENHYDRAMINE HYDROCHLORIDE [Concomitant]
     Active Substance: DIPHENHYDRAMINE HYDROCHLORIDE
     Dates: start: 20160803, end: 20160803
  13. PALONOSETRON HYDROCHLORIDE [Concomitant]
     Active Substance: PALONOSETRON HYDROCHLORIDE
     Indication: Nausea
     Dates: start: 20160713, end: 20160713
  14. PALONOSETRON HYDROCHLORIDE [Concomitant]
     Active Substance: PALONOSETRON HYDROCHLORIDE
     Dates: start: 20160803, end: 20160803
  15. INVERT SUGAR [Concomitant]
     Active Substance: INVERT SUGAR
     Dates: start: 20160713, end: 20160713
  16. INVERT SUGAR [Concomitant]
     Active Substance: INVERT SUGAR
     Dates: start: 20160803, end: 20160803
  17. TANDOSPIRONE CITRATE [Concomitant]
     Active Substance: TANDOSPIRONE CITRATE
     Indication: Anxiety
     Dates: start: 20160801, end: 20160803
  18. PAROXETINE HYDROCHLORIDE [Concomitant]
     Active Substance: PAROXETINE HYDROCHLORIDE
     Indication: Anxiety
     Dates: start: 20160801, end: 20160803
  19. OLANZAPINE [Concomitant]
     Active Substance: OLANZAPINE
     Indication: Anxiety
     Dates: start: 20160801, end: 20160803
  20. LANSOPRAZOLE [Concomitant]
     Active Substance: LANSOPRAZOLE
     Dates: start: 20160819, end: 20160823
  21. GLUTATHIONE [Concomitant]
     Active Substance: GLUTATHIONE
     Dates: start: 20160803, end: 20160803
  22. GLUTATHIONE [Concomitant]
     Active Substance: GLUTATHIONE
     Dates: start: 20160819, end: 20160823
  23. GLUTATHIONE [Concomitant]
     Active Substance: GLUTATHIONE
     Dates: start: 20160727, end: 20160731
  24. ADEMETIONINE BUTANEDISULFONATE [Concomitant]
     Active Substance: ADEMETIONINE BUTANEDISULFONATE
     Dates: start: 20160803, end: 20160803
  25. HERBALS\DIAMMONIUM GLYCYRRHIZINATE [Concomitant]
     Active Substance: HERBALS\DIAMMONIUM GLYCYRRHIZINATE
     Dates: start: 20160804, end: 20160819
  26. HERBALS\DIAMMONIUM GLYCYRRHIZINATE [Concomitant]
     Active Substance: HERBALS\DIAMMONIUM GLYCYRRHIZINATE
     Dates: start: 20160826, end: 20160830
  27. SODIUM CHLORIDE [Concomitant]
     Active Substance: SODIUM CHLORIDE
     Dates: start: 20160719, end: 20160823
  28. MAGNESIUM ISOGLYCYRRHIZINATE [Concomitant]
     Active Substance: MAGNESIUM ISOGLYCYRRHIZINATE
     Dates: start: 20160727, end: 20160731
  29. MAGNESIUM ISOGLYCYRRHIZINATE [Concomitant]
     Active Substance: MAGNESIUM ISOGLYCYRRHIZINATE
     Dates: start: 20160819, end: 20160823
  30. PEGFILGRASTIM [Concomitant]
     Active Substance: PEGFILGRASTIM
     Dates: start: 20160715, end: 20160715
  31. PEGFILGRASTIM [Concomitant]
     Active Substance: PEGFILGRASTIM
     Dates: start: 20160805, end: 20160805

REACTIONS (1)
  - Liver disorder [Recovered/Resolved]

NARRATIVE: CASE EVENT DATE: 20160812
